FAERS Safety Report 9553050 (Version 3)
Quarter: 2013Q4

REPORT INFORMATION
  Report Type: Report from Study
  Country: KR (occurrence: KR)
  Receive Date: 20130925
  Receipt Date: 20131106
  Transmission Date: 20140711
  Serious: Yes (Hospitalization)
  Sender: FDA-Public Use
  Company Number: KR-PFIZER INC-2013266171

PATIENT
  Age: 54 Year
  Sex: Male

DRUGS (3)
  1. SUNITINIB MALATE [Suspect]
     Indication: RENAL CELL CARCINOMA
     Dosage: 50 MG/DAY
     Route: 048
     Dates: start: 20101013
  2. SUNITINIB MALATE [Suspect]
     Dosage: 37.5 MG/DAY
     Route: 048
     Dates: start: 20110910
  3. SUNITINIB MALATE [Suspect]
     Dosage: 50 MG/DAY
     Route: 048
     Dates: start: 20130423, end: 20130902

REACTIONS (1)
  - Colitis [Recovered/Resolved]
